FAERS Safety Report 16382916 (Version 1)
Quarter: 2019Q2

REPORT INFORMATION
  Report Type: Spontaneous
  Country: FR (occurrence: FR)
  Receive Date: 20190603
  Receipt Date: 20190603
  Transmission Date: 20190711
  Serious: Yes (Hospitalization)
  Sender: FDA-Public Use
  Company Number: FR-ZYDUS-037342

PATIENT
  Age: 80 Year
  Sex: Female
  Weight: 53.8 kg

DRUGS (6)
  1. CLORAZEPIC ACID [Suspect]
     Active Substance: CLORAZEPIC ACID
     Indication: DEPRESSION
     Dosage: 10 MG CAPSULE
     Route: 048
     Dates: start: 20190421, end: 20190421
  2. PHLOROGLUCINOL/TRIMETHYLPHLOROGLUCINOL [Suspect]
     Active Substance: PHLOROGLUCINOL
     Indication: PRODUCT USED FOR UNKNOWN INDICATION
     Dosage: ()
     Route: 048
     Dates: end: 20190423
  3. BROMAZEPAM [Suspect]
     Active Substance: BROMAZEPAM
     Indication: DEPRESSION
     Dosage: 12 MG TABLET
     Route: 048
     Dates: start: 201801, end: 20190423
  4. OMEPRAZOLE. [Suspect]
     Active Substance: OMEPRAZOLE
     Indication: PRODUCT USED FOR UNKNOWN INDICATION
     Route: 048
     Dates: start: 201801, end: 20190423
  5. PARACETAMOL [Concomitant]
     Active Substance: ACETAMINOPHEN
     Indication: PRODUCT USED FOR UNKNOWN INDICATION
  6. ESTAZOLAM. [Suspect]
     Active Substance: ESTAZOLAM
     Indication: DEPRESSION
     Dosage: 2 MG TABLET
     Route: 048
     Dates: start: 201710, end: 20190423

REACTIONS (2)
  - Rhabdomyolysis [Recovered/Resolved]
  - Fall [Recovered/Resolved]

NARRATIVE: CASE EVENT DATE: 20190423
